FAERS Safety Report 10247669 (Version 1)
Quarter: 2014Q2

REPORT INFORMATION
  Report Type: Spontaneous
  Country: PT (occurrence: PT)
  Receive Date: 20140619
  Receipt Date: 20140619
  Transmission Date: 20141212
  Serious: Yes (Hospitalization)
  Sender: FDA-Public Use
  Company Number: PT-ASTELLAS-2014US007055

PATIENT
  Age: 9 Month
  Sex: Female

DRUGS (2)
  1. AMPHOTERICIN B [Suspect]
     Indication: SYSTEMIC MYCOSIS
     Route: 065
  2. GANCICLOVIR [Concomitant]
     Indication: PRODUCT USED FOR UNKNOWN INDICATION
     Dosage: UNK UNK, UNKNOWN FREQ.
     Route: 065

REACTIONS (1)
  - Atrioventricular block [Recovered/Resolved]
